FAERS Safety Report 7645817-5 (Version None)
Quarter: 2011Q3

REPORT INFORMATION
  Report Type: 
  Country: None (occurrence: None)
  Receive Date: 20110729
  Receipt Date: 20110720
  Transmission Date: 20111222
  Serious: Yes (Other)
  Sender: FDA-Public Use
  Company Number: US-ASTRAZENECA-2011SE43274

PATIENT
  Age: 821 Month
  Sex: Male
  Weight: 90.7 kg

DRUGS (9)
  1. SUNITINIB MALATE [Suspect]
     Indication: RENAL CELL CARCINOMA
     Dosage: SORAFENIB OR PLACEBO 16800 MG AND SUNITINIB MALATE OR  PLACEBO 1050MG
     Route: 048
     Dates: start: 20100916, end: 20110525
  2. METOPROLOL SUCCINATE [Suspect]
     Route: 048
  3. ASPIRIN [Concomitant]
  4. TRAZODONE HCL [Concomitant]
  5. AMLODIPINE BESYLATE [Suspect]
  6. ZOLOFT [Concomitant]
  7. LOSARTAN POTASSIUM [Suspect]
     Route: 048
  8. KLONOPIN [Concomitant]
  9. TRAMADOL HCL [Concomitant]

REACTIONS (1)
  - AUTONOMIC NERVOUS SYSTEM IMBALANCE [None]
